FAERS Safety Report 18142884 (Version 2)
Quarter: 2020Q3

REPORT INFORMATION
  Report Type: Spontaneous
  Country: US (occurrence: US)
  Receive Date: 20200812
  Receipt Date: 20200828
  Transmission Date: 20201103
  Serious: Yes (Other)
  Sender: FDA-Public Use
  Company Number: US-TEVA-2020-US-1812718

PATIENT
  Age: 65 Year
  Sex: Female

DRUGS (3)
  1. 5?FLUOROURACIL [Suspect]
     Active Substance: FLUOROURACIL
     Indication: BREAST CANCER
     Dosage: ON DAYS ONE AND EIGHT OF EACH CYCLE.
     Route: 042
  2. METHOTREXATE. [Concomitant]
     Active Substance: METHOTREXATE
     Indication: BREAST CANCER
     Dosage: ON DAYS ONE AND EIGHT OF EACH CYCLE.
     Route: 042
  3. CYCLOPHOSPHAMIDE. [Concomitant]
     Active Substance: CYCLOPHOSPHAMIDE
     Indication: BREAST CANCER
     Dosage: FIRST 14 DAYS OF THE EACH CYCLE
     Route: 048

REACTIONS (1)
  - Chronic cutaneous lupus erythematosus [Recovered/Resolved]
